FAERS Safety Report 7675062-9 (Version None)
Quarter: 2011Q3

REPORT INFORMATION
  Report Type: 
  Country: None (occurrence: None)
  Receive Date: 20110810
  Receipt Date: 20110727
  Transmission Date: 20111222
  Serious: Yes (Hospitalization, Other)
  Sender: FDA-Public Use
  Company Number: US-ELI_LILLY_AND_COMPANY-US201009003632

PATIENT
  Sex: Female

DRUGS (17)
  1. FORTEO [Suspect]
     Dosage: 20 UG, QD
  2. PANTOPRAZOLE [Concomitant]
     Indication: DYSPEPSIA
     Dosage: 40 MG, 2/D
  3. SYMBICORT [Concomitant]
     Dosage: UNK, DAILY (1/D)
     Route: 045
  4. LEXAPRO [Concomitant]
     Dosage: 10 MG, DAILY (1/D)
  5. VITAMIN D [Concomitant]
     Dosage: 2000 D/F, UNK
  6. BUPROPION HCL [Concomitant]
     Dosage: 300 MG, DAILY (1/D)
  7. BENICAR HCT [Concomitant]
     Dosage: UNK, DAILY (1/D)
  8. MUCINEX [Concomitant]
     Dosage: UNK, UNKNOWN
     Route: 065
  9. FORTEO [Suspect]
     Dosage: 20 UG, QD
     Route: 065
  10. ANTIVERT /00072802/ [Concomitant]
     Indication: DIZZINESS
     Dosage: UNK, AS NEEDED
  11. FORTEO [Suspect]
     Indication: OSTEOPOROSIS
     Dosage: 20 UG, QD
     Dates: start: 20100801, end: 20100823
  12. XANAX [Concomitant]
     Dosage: 0.5 MG, 3/D
  13. FLUTICASONE PROPIONATE [Concomitant]
     Dosage: UNK, DAILY (1/D)
     Route: 045
  14. CALCIUM CARBONATE [Concomitant]
     Dosage: UNK, UNKNOWN
     Route: 065
  15. WELLBUTRIN [Concomitant]
     Dosage: UNK, UNKNOWN
     Route: 065
  16. NASONEX [Concomitant]
     Dosage: UNK, UNKNOWN
     Route: 065
  17. PERCOCET [Concomitant]
     Dosage: UNK, AS NEEDED

REACTIONS (9)
  - JOINT INJURY [None]
  - PNEUMONIA [None]
  - BRONCHITIS [None]
  - PROCEDURAL PAIN [None]
  - ARTHRALGIA [None]
  - HOSPITALISATION [None]
  - INJECTION SITE PAIN [None]
  - ROAD TRAFFIC ACCIDENT [None]
  - HIATUS HERNIA [None]
